FAERS Safety Report 15970923 (Version 2)
Quarter: 2019Q1

REPORT INFORMATION
  Report Type: Report from Study
  Country: US (occurrence: US)
  Receive Date: 20190215
  Receipt Date: 20190326
  Transmission Date: 20190418
  Serious: Yes (Death, Hospitalization)
  Sender: FDA-Public Use
  Company Number: US-ADAMAS PHARMA, LLC-2018ADA01107

PATIENT
  Age: 86 Year
  Sex: Female

DRUGS (12)
  1. GOCOVRI [Suspect]
     Active Substance: AMANTADINE
     Indication: DYSKINESIA
     Dosage: 68.5 MG, 1X/DAY AT BEDTIME
     Route: 048
     Dates: start: 2018, end: 201901
  2. AVASTIN [Concomitant]
     Active Substance: BEVACIZUMAB
  3. TYLENOL [Concomitant]
     Active Substance: ACETAMINOPHEN
  4. STALEVO [Concomitant]
     Active Substance: CARBIDOPA\ENTACAPONE\LEVODOPA
  5. VITAMIN B12 [Concomitant]
     Active Substance: CYANOCOBALAMIN
  6. MIDODRINE [Concomitant]
     Active Substance: MIDODRINE
  7. PRESERVISION [Concomitant]
     Active Substance: MINERALS\VITAMINS
  8. MESTINON [Concomitant]
     Active Substance: PYRIDOSTIGMINE BROMIDE
  9. VITAMIN D [Concomitant]
     Active Substance: CHOLECALCIFEROL
  10. NITROSTAT [Concomitant]
     Active Substance: NITROGLYCERIN
  11. GOCOVRI [Suspect]
     Active Substance: AMANTADINE
     Indication: DYSKINESIA
     Dosage: 137 MG, 1X/DAY AT BEDTIME
     Route: 048
     Dates: start: 20180324, end: 2018
  12. PRILOSEC OTC [Concomitant]
     Active Substance: OMEPRAZOLE MAGNESIUM

REACTIONS (15)
  - Loss of consciousness [Recovered/Resolved]
  - Metabolic encephalopathy [Unknown]
  - Fall [Unknown]
  - Posterior reversible encephalopathy syndrome [Unknown]
  - Gastrostomy [Not Recovered/Not Resolved]
  - Seizure [Unknown]
  - Tracheostomy [Not Recovered/Not Resolved]
  - Acute respiratory failure [Unknown]
  - Hypoxia [Unknown]
  - Hypotension [Not Recovered/Not Resolved]
  - Death [Fatal]
  - Joint swelling [Unknown]
  - Acute kidney injury [Unknown]
  - Skin laceration [Unknown]
  - Deep vein thrombosis [Unknown]

NARRATIVE: CASE EVENT DATE: 2018
